FAERS Safety Report 9457790 (Version 3)
Quarter: 2013Q3

REPORT INFORMATION
  Report Type: Report from Study
  Country: NZ (occurrence: NZ)
  Receive Date: 20130814
  Receipt Date: 20130919
  Transmission Date: 20140515
  Serious: Yes (Death, Life-Threatening, Hospitalization, Other)
  Sender: FDA-Public Use
  Company Number: PHHY2013NZ087522

PATIENT
  Age: 71 Year
  Sex: Male

DRUGS (8)
  1. CLOZARIL [Suspect]
     Indication: PSYCHOTIC DISORDER
     Dosage: 25 MG, MANE
     Route: 048
     Dates: start: 20100326, end: 20130808
  2. SENNA [Concomitant]
     Indication: CONSTIPATION
     Dosage: UNK UKN, NOCTE
     Route: 048
     Dates: start: 2010, end: 20130801
  3. TRIMETHOPRIM [Concomitant]
     Indication: URINARY TRACT INFECTION
     Dosage: 150 MG, NOCTE
     Route: 048
     Dates: start: 2010, end: 20130801
  4. OMEPRAZOLE [Concomitant]
     Indication: GASTROOESOPHAGEAL REFLUX DISEASE
     Dosage: 20 MG, MANE
     Route: 048
     Dates: start: 2010, end: 20130801
  5. CRANBERRY BERCO [Concomitant]
     Indication: URINARY TRACT INFECTION
     Dosage: UNK UKN, UNK
     Route: 048
     Dates: start: 2010, end: 20130801
  6. VITAMIN B12 [Concomitant]
     Indication: VITAMIN B12 ABNORMAL
     Dosage: 1000 UG, THREE MOTHLY
     Route: 030
     Dates: start: 2010, end: 20130801
  7. BUSCOPAN [Concomitant]
     Route: 058
  8. MORPHINE [Concomitant]
     Route: 058

REACTIONS (10)
  - Dementia Alzheimer^s type [Fatal]
  - Cardio-respiratory arrest [Fatal]
  - Organ failure [Fatal]
  - Movement disorder [Fatal]
  - General physical health deterioration [Unknown]
  - Mobility decreased [Unknown]
  - Speech disorder [Unknown]
  - Hypophagia [Unknown]
  - Infection [Unknown]
  - Dysphagia [Unknown]
